FAERS Safety Report 18334467 (Version 5)
Quarter: 2022Q2

REPORT INFORMATION
  Report Type: Spontaneous
  Country: US (occurrence: US)
  Receive Date: 20201001
  Receipt Date: 20220418
  Transmission Date: 20220721
  Serious: No
  Sender: FDA-Public Use
  Company Number: US-PFIZER INC-2020235260

PATIENT
  Age: 65 Year
  Sex: Female

DRUGS (1)
  1. IBRANCE [Suspect]
     Active Substance: PALBOCICLIB
     Indication: Breast cancer female
     Dosage: 75 MG, CYCLIC (TAKE 1 PO Q (EVERY) DAY X 2 WEEKS, THEN OFF 7 DAYS)
     Route: 048
     Dates: start: 20190829

REACTIONS (2)
  - Nausea [Unknown]
  - Vomiting [Unknown]
